FAERS Safety Report 6075369-5 (Version None)
Quarter: 2009Q1

REPORT INFORMATION
  Report Type: 
  Country: None (occurrence: None)
  Receive Date: 20090212
  Receipt Date: 20080829
  Transmission Date: 20090719
  Serious: No
  Sender: FDA-Public Use
  Company Number: US-BAUSCH-2008BL003767

PATIENT
  Age: 14 Year
  Sex: Female
  Weight: 37 kg

DRUGS (1)
  1. FLUNISOLIDE NASAL SOLUTION USP 0.025% [Suspect]
     Indication: SINUSITIS
     Route: 045
     Dates: start: 20080801

REACTIONS (1)
  - FACE INJURY [None]
